FAERS Safety Report 25597237 (Version 1)
Quarter: 2025Q3

REPORT INFORMATION
  Report Type: Spontaneous
  Country: US (occurrence: US)
  Receive Date: 20250723
  Receipt Date: 20250723
  Transmission Date: 20251021
  Serious: No
  Sender: PROGENICS PHARMACEUTICALS
  Company Number: US-PROGENICS PHARMACEUTICALS, INC.-LMI-2025-00098

PATIENT

DRUGS (1)
  1. PYLARIFY [Suspect]
     Active Substance: PIFLUFOLASTAT F-18
     Indication: Product used for unknown indication
     Dates: start: 20250123, end: 20250123

REACTIONS (2)
  - Drug dispensed to wrong patient [Unknown]
  - Product administration error [Unknown]

NARRATIVE: CASE EVENT DATE: 20250123
